FAERS Safety Report 24606106 (Version 3)
Quarter: 2025Q2

REPORT INFORMATION
  Report Type: Spontaneous
  Country: JP (occurrence: JP)
  Receive Date: 20241112
  Receipt Date: 20250623
  Transmission Date: 20250717
  Serious: Yes (Hospitalization, Other)
  Sender: GLAXOSMITHKLINE
  Company Number: JP-GSK-JP2024JPN137701

PATIENT
  Age: 68 Year
  Sex: Female
  Weight: 59.2 kg

DRUGS (1)
  1. VALACYCLOVIR HYDROCHLORIDE [Suspect]
     Active Substance: VALACYCLOVIR HYDROCHLORIDE
     Indication: Herpes zoster
     Dosage: 3000 MG, QD

REACTIONS (5)
  - Toxic encephalopathy [Unknown]
  - Altered state of consciousness [Recovered/Resolved]
  - Acute kidney injury [Unknown]
  - Renal impairment [Recovered/Resolved]
  - Vomiting [Unknown]
